FAERS Safety Report 23878978 (Version 9)
Quarter: 2025Q2

REPORT INFORMATION
  Report Type: Spontaneous
  Country: US (occurrence: US)
  Receive Date: 20240521
  Receipt Date: 20250417
  Transmission Date: 20250717
  Serious: Yes (Other)
  Sender: BRISTOL MYERS SQUIBB
  Company Number: US-BRISTOL-MYERS SQUIBB COMPANY-2024-078935

PATIENT
  Age: 71 Year
  Sex: Female

DRUGS (6)
  1. LENALIDOMIDE [Suspect]
     Active Substance: LENALIDOMIDE
     Indication: Plasma cell myeloma
     Route: 048
  2. LENALIDOMIDE [Suspect]
     Active Substance: LENALIDOMIDE
     Route: 048
  3. LENALIDOMIDE [Suspect]
     Active Substance: LENALIDOMIDE
     Route: 048
  4. LENALIDOMIDE [Suspect]
     Active Substance: LENALIDOMIDE
     Dosage: TAKE 1 CAPSULE BY MOUTH EVERY DAY ?WITH FOOD
     Route: 048
     Dates: start: 20240209
  5. LENALIDOMIDE [Suspect]
     Active Substance: LENALIDOMIDE
     Dosage: TAKE 1 CAPSULE BY MOUTH EVERY DAY WITH FOOD
     Route: 048
  6. LENALIDOMIDE [Suspect]
     Active Substance: LENALIDOMIDE
     Dosage: EVERY OTHER DAY/TAKE 1 CAPSULE BY MOUTH EVERY OTHER DAY FOR 21 DAYS THEN STOP FOR 7 DAYS
     Route: 048

REACTIONS (13)
  - Visual impairment [Not Recovered/Not Resolved]
  - White blood cell count decreased [Recovering/Resolving]
  - Thyroid disorder [Not Recovered/Not Resolved]
  - Blood phosphorus decreased [Not Recovered/Not Resolved]
  - Tremor [Not Recovered/Not Resolved]
  - Fatigue [Not Recovered/Not Resolved]
  - Hypotension [Not Recovered/Not Resolved]
  - Renal disorder [Unknown]
  - Hepatic enzyme increased [Recovered/Resolved]
  - Blood thyroid stimulating hormone decreased [Not Recovered/Not Resolved]
  - Full blood count abnormal [Not Recovered/Not Resolved]
  - Laboratory test abnormal [Unknown]
  - Haemoglobin decreased [Not Recovered/Not Resolved]
